FAERS Safety Report 21655650 (Version 1)
Quarter: 2022Q4

REPORT INFORMATION
  Report Type: Spontaneous
  Country: JP (occurrence: JP)
  Receive Date: 20221129
  Receipt Date: 20221129
  Transmission Date: 20230113
  Serious: Yes (Other)
  Sender: FDA-Public Use
  Company Number: JP-ALKEM LABORATORIES LIMITED-JP-ALKEM-2022-02675

PATIENT
  Age: 44 Year
  Sex: Female

DRUGS (12)
  1. OLANZAPINE [Suspect]
     Active Substance: OLANZAPINE
     Indication: Hallucination
     Dosage: 15 MILLIGRAM
     Route: 065
  2. OLANZAPINE [Suspect]
     Active Substance: OLANZAPINE
     Indication: Apathy
  3. LURASIDONE [Suspect]
     Active Substance: LURASIDONE
     Indication: Hallucination
     Dosage: 80 MILLIGRAM
     Route: 065
  4. LURASIDONE [Suspect]
     Active Substance: LURASIDONE
     Indication: Apathy
  5. CLOZAPINE [Suspect]
     Active Substance: CLOZAPINE
     Indication: Hallucination
     Dosage: 12.5 MILLIGRAM, QD (AFTER EVERY EVENING MEAL)
     Route: 048
  6. CLOZAPINE [Suspect]
     Active Substance: CLOZAPINE
     Indication: Apathy
     Dosage: 50 MILLIGRAM
     Route: 048
  7. BREXPIPRAZOLE [Suspect]
     Active Substance: BREXPIPRAZOLE
     Indication: Hallucination
     Dosage: 2 MILLIGRAM
     Route: 065
  8. BREXPIPRAZOLE [Suspect]
     Active Substance: BREXPIPRAZOLE
     Indication: Apathy
  9. TOZINAMERAN [Suspect]
     Active Substance: TOZINAMERAN
     Indication: COVID-19 prophylaxis
     Dosage: DOSE 1 ON DAY 28
     Route: 065
  10. TOZINAMERAN [Suspect]
     Active Substance: TOZINAMERAN
     Dosage: DOSE 2 ON DAY 54
     Route: 065
  11. CLONAZEPAM [Concomitant]
     Active Substance: CLONAZEPAM
     Indication: Product used for unknown indication
     Dosage: 1 MILLIGRAM
     Route: 065
  12. LEMBOREXANT [Concomitant]
     Active Substance: LEMBOREXANT
     Indication: Product used for unknown indication
     Dosage: 10 MILLIGRAM
     Route: 065

REACTIONS (4)
  - Leukopenia [Recovered/Resolved]
  - Neutropenia [Recovered/Resolved]
  - Drug interaction [Unknown]
  - Drug ineffective [Unknown]
